FAERS Safety Report 6678484-8 (Version None)
Quarter: 2010Q2

REPORT INFORMATION
  Report Type: 
  Country: None (occurrence: None)
  Receive Date: 20100413
  Receipt Date: 20100405
  Transmission Date: 20101027
  Serious: No
  Sender: FDA-Public Use
  Company Number: US-BIOGENIDEC-2010BI011616

PATIENT
  Age: 23 Year
  Sex: Female

DRUGS (2)
  1. TYSABRI [Suspect]
     Indication: MULTIPLE SCLEROSIS
     Route: 042
     Dates: start: 20080811
  2. REBIF [Concomitant]
     Indication: MULTIPLE SCLEROSIS
     Dates: start: 20020101

REACTIONS (2)
  - EUPHORIC MOOD [None]
  - MUSCLE SPASTICITY [None]
